FAERS Safety Report 7246850-8 (Version None)
Quarter: 2011Q1

REPORT INFORMATION
  Report Type: 
  Country: None (occurrence: None)
  Receive Date: 20110127
  Receipt Date: 20110125
  Transmission Date: 20110831
  Serious: Yes (Hospitalization)
  Sender: FDA-Public Use
  Company Number: JP-PFIZER INC-2011006176

PATIENT
  Age: 78 Year
  Sex: Female
  Weight: 50 kg

DRUGS (4)
  1. MUCOSOLVAN [Concomitant]
     Indication: BRONCHITIS
     Dosage: 15 MG, 3X/DAY
     Route: 048
     Dates: start: 20100129, end: 20101231
  2. ENTERONON R [Concomitant]
     Dosage: 1 G, 3X/DAY
     Route: 048
     Dates: start: 20101229, end: 20101231
  3. HUSTAZOL [Concomitant]
     Indication: BRONCHITIS
     Dosage: 10 MG, 3X/DAY
     Route: 048
     Dates: start: 20101229, end: 20101231
  4. ZITHROMAC SR [Suspect]
     Indication: BRONCHITIS
     Dosage: 2 G, SINGLE
     Route: 048
     Dates: start: 20101229, end: 20101229

REACTIONS (3)
  - PYREXIA [None]
  - DIARRHOEA [None]
  - CHILLS [None]
